FAERS Safety Report 4629171-9 (Version None)
Quarter: 2005Q2

REPORT INFORMATION
  Report Type: 
  Country: None (occurrence: None)
  Receive Date: 20050407
  Receipt Date: 20050310
  Transmission Date: 20051028
  Serious: Yes (Hospitalization)
  Sender: FDA-Public Use
  Company Number: PHNR2005AU00645

PATIENT
  Age: 77 Year
  Sex: Female

DRUGS (3)
  1. CALCIUM GLUCONATE [Concomitant]
     Route: 048
  2. FOSAMAX [Concomitant]
  3. FEMARA [Suspect]
     Indication: BREAST CANCER
     Dosage: 2.5 MG, QD
     Route: 048
     Dates: start: 20050304

REACTIONS (7)
  - DIZZINESS [None]
  - FALL [None]
  - HYPERTENSION [None]
  - LOSS OF CONSCIOUSNESS [None]
  - SKULL FRACTURE [None]
  - SUBDURAL HAEMATOMA [None]
  - WRIST FRACTURE [None]
